FAERS Safety Report 5404490-7 (Version None)
Quarter: 2007Q3

REPORT INFORMATION
  Report Type: 
  Country: None (occurrence: None)
  Receive Date: 20070802
  Receipt Date: 20070724
  Transmission Date: 20080115
  Serious: Yes (Death, Hospitalization)
  Sender: FDA-Public Use
  Company Number: US-ABBOTT-07P-163-0362414-00

PATIENT
  Sex: Male
  Weight: 106.8 kg

DRUGS (5)
  1. DEPAKOTE ER [Suspect]
     Indication: BIPOLAR DISORDER
     Route: 048
     Dates: start: 20060909, end: 20061006
  2. DEPAKOTE ER [Suspect]
     Route: 048
     Dates: start: 20061021, end: 20061212
  3. DEPAKOTE ER [Suspect]
     Dates: end: 20061021
  4. QUETIAPINE FUMARATE [Concomitant]
     Indication: BIPOLAR DISORDER
     Route: 048
     Dates: start: 20061021, end: 20061212
  5. QUETIAPINE FUMARATE [Concomitant]
     Route: 048
     Dates: start: 20061021, end: 20061212

REACTIONS (8)
  - ABDOMINAL PAIN [None]
  - DRUG INEFFECTIVE [None]
  - GENERAL PHYSICAL HEALTH DETERIORATION [None]
  - MENTAL DISORDER [None]
  - PANCREATITIS HAEMORRHAGIC [None]
  - PANCREATITIS NECROTISING [None]
  - SOMNOLENCE [None]
  - WEIGHT INCREASED [None]
